FAERS Safety Report 6911804-5 (Version None)
Quarter: 2010Q3

REPORT INFORMATION
  Report Type: 
  Country: None (occurrence: None)
  Receive Date: 20100806
  Receipt Date: 20070717
  Transmission Date: 20110219
  Serious: No
  Sender: FDA-Public Use
  Company Number: US-PFIZER INC-2007061018

PATIENT
  Age: 81 Year
  Sex: Female

DRUGS (1)
  1. DETROL LA [Suspect]

REACTIONS (1)
  - DRY MOUTH [None]
